FAERS Safety Report 6975131-2 (Version None)
Quarter: 2010Q3

REPORT INFORMATION
  Report Type: 
  Country: None (occurrence: None)
  Receive Date: 20100910
  Receipt Date: 20090204
  Transmission Date: 20110219
  Serious: No
  Sender: FDA-Public Use
  Company Number: US-WYE-H08106309

PATIENT
  Age: 44 Year
  Sex: Male
  Weight: 86.26 kg

DRUGS (2)
  1. ADVIL PM [Suspect]
     Indication: MUSCULOSKELETAL PAIN
     Dosage: 3 CAPLETS DAILY AT BED TIME
     Route: 048
     Dates: start: 20030101
  2. ADVIL PM [Suspect]
     Indication: INSOMNIA

REACTIONS (3)
  - OVERDOSE [None]
  - PROSTATITIS [None]
  - RENAL PAIN [None]
